FAERS Safety Report 5896741-X (Version None)
Quarter: 2008Q3

REPORT INFORMATION
  Report Type: 
  Country: None (occurrence: None)
  Receive Date: 20080924
  Receipt Date: 20071213
  Transmission Date: 20090109
  Serious: Yes (Other)
  Sender: FDA-Public Use
  Company Number: US-ASTRAZENECA-2007UW28658

PATIENT
  Age: 44 Year
  Sex: Male

DRUGS (10)
  1. SEROQUEL [Suspect]
     Dosage: 300 MG AM PLUS 600 MG HS
     Route: 048
  2. LAMICTAL [Concomitant]
  3. METHADONE HCL [Concomitant]
  4. NORCO [Concomitant]
  5. METOPROLOL TARTRATE [Concomitant]
  6. FELODIPINE [Concomitant]
  7. SULFACETAMIDE [Concomitant]
  8. EFFEXOR XR [Concomitant]
  9. PRILOSEC [Concomitant]
  10. COUMADIN [Concomitant]

REACTIONS (3)
  - BLOOD GLUCOSE INCREASED [None]
  - THIRST [None]
  - WEIGHT ABNORMAL [None]
